FAERS Safety Report 20628851 (Version 2)
Quarter: 2022Q1

REPORT INFORMATION
  Report Type: Report from Study
  Country: US (occurrence: US)
  Receive Date: 20220323
  Receipt Date: 20220328
  Transmission Date: 20220423
  Serious: Yes (Life-Threatening, Hospitalization)
  Sender: FDA-Public Use
  Company Number: US-BAYER-2021-203005

PATIENT
  Age: 59 Year
  Sex: Male

DRUGS (2)
  1. REGORAFENIB [Suspect]
     Active Substance: REGORAFENIB
     Indication: Glioblastoma
     Dosage: 160 MG, QD X 21 D OF 28 D CYCLE
     Route: 048
     Dates: start: 20210804, end: 20210816
  2. REGORAFENIB [Suspect]
     Active Substance: REGORAFENIB
     Indication: Glioblastoma
     Dosage: 120 MG, QD X 21 D OF 28 D CYCLE
     Route: 048
     Dates: start: 20210901

REACTIONS (1)
  - Neutropenia [Recovered/Resolved]

NARRATIVE: CASE EVENT DATE: 20210818
